FAERS Safety Report 6255200-5 (Version None)
Quarter: 2009Q3

REPORT INFORMATION
  Report Type: 
  Country: None (occurrence: None)
  Receive Date: 20090702
  Receipt Date: 20090519
  Transmission Date: 20100115
  Serious: No
  Sender: FDA-Public Use
  Company Number: US-BAYER-200923022NA

PATIENT
  Age: 62 Year
  Sex: Female
  Weight: 68 kg

DRUGS (2)
  1. ULTRAVIST (PHARMACY BULK) [Suspect]
     Indication: COMPUTERISED TOMOGRAM ABDOMEN
     Dosage: TOTAL DAILY DOSE: 100 ML  UNIT DOSE: 500 ML
     Route: 042
     Dates: start: 20090512, end: 20090512
  2. REDI-CAT [Concomitant]
     Dosage: 1ST AND 2ND DOSE GIVEN 2 HRS PRIOR TO CAT SCAN AND 3RD DOSE GIVEN WHEN PATIENT ARRIVED FOR CAT SCAN
     Route: 048
     Dates: start: 20090512, end: 20090512

REACTIONS (2)
  - PRURITUS [None]
  - URTICARIA [None]
